FAERS Safety Report 12617756 (Version 1)
Quarter: 2016Q3

REPORT INFORMATION
  Report Type: Report from Study
  Country: US (occurrence: US)
  Receive Date: 20160803
  Receipt Date: 20160803
  Transmission Date: 20161109
  Serious: Yes (Other)
  Sender: FDA-Public Use
  Company Number: US-AMGEN-USASL2016098585

PATIENT
  Age: 55 Year
  Sex: Female

DRUGS (2)
  1. ENBREL [Suspect]
     Active Substance: ETANERCEPT
     Indication: RHEUMATOID ARTHRITIS
     Dosage: UNK
     Route: 065
  2. METHOTREXATE. [Suspect]
     Active Substance: METHOTREXATE
     Indication: PRODUCT USED FOR UNKNOWN INDICATION
     Dosage: UNK
     Route: 065

REACTIONS (12)
  - Injection site mass [Unknown]
  - Injection site discolouration [Not Recovered/Not Resolved]
  - Injection site rash [Unknown]
  - Injection site erythema [Unknown]
  - Injection site scar [Unknown]
  - Injection site pruritus [Unknown]
  - Lethargy [Unknown]
  - Asthenia [Unknown]
  - Presyncope [Unknown]
  - Disorientation [Unknown]
  - Rheumatoid arthritis [Unknown]
  - Dizziness [Unknown]

NARRATIVE: CASE EVENT DATE: 201607
